FAERS Safety Report 6220608-0 (Version None)
Quarter: 2009Q2

REPORT INFORMATION
  Report Type: 
  Country: None (occurrence: None)
  Receive Date: 20090603
  Receipt Date: 20090526
  Transmission Date: 20091009
  Serious: Yes (Death, Hospitalization)
  Sender: FDA-Public Use
  Company Number: WAES 0905USA03988

PATIENT
  Age: 50 Year
  Sex: Male
  Weight: 63.05 kg

DRUGS (7)
  1. CAP VORINOSTAT UNK [Suspect]
     Indication: BREAST CANCER METASTATIC
     Dosage: 200 MG BID PO
     Route: 048
     Dates: start: 20090423, end: 20090518
  2. CAPECITABINE UNK [Suspect]
     Dosage: 1800 MG BID UNK
     Dates: start: 20090423, end: 20090518
  3. K-DUR [Concomitant]
  4. KEPPRA [Concomitant]
  5. ZOFRAN [Concomitant]
  6. ZOMETA [Concomitant]
  7. ASPIRIN [Concomitant]

REACTIONS (3)
  - BLOOD PRESSURE DECREASED [None]
  - HYPOKALAEMIA [None]
  - INTESTINAL PERFORATION [None]
